FAERS Safety Report 5574304-3 (Version None)
Quarter: 2007Q4

REPORT INFORMATION
  Report Type: 
  Country: None (occurrence: None)
  Receive Date: 20071227
  Receipt Date: 20071217
  Transmission Date: 20080405
  Serious: Yes (Other)
  Sender: FDA-Public Use
  Company Number: US-BAYER-US-2007-028086

PATIENT
  Age: 39 Year
  Sex: Female
  Weight: 61 kg

DRUGS (2)
  1. MIRENA [Suspect]
     Indication: CONTRACEPTION
     Route: 015
     Dates: start: 20020301, end: 20070308
  2. MIRENA [Suspect]
     Route: 015
     Dates: start: 20070308, end: 20070722

REACTIONS (3)
  - AMENORRHOEA [None]
  - ECTOPIC PREGNANCY WITH INTRAUTERINE DEVICE [None]
  - RUPTURED ECTOPIC PREGNANCY [None]
